FAERS Safety Report 12247547 (Version 1)
Quarter: 2016Q2

REPORT INFORMATION
  Report Type: Report from Study
  Country: US (occurrence: US)
  Receive Date: 20160407
  Receipt Date: 20160407
  Transmission Date: 20160815
  Serious: Yes (Hospitalization, Other)
  Sender: FDA-Public Use
  Company Number: US-TAKEDA-TPA2011A02549

PATIENT
  Age: 86 Year
  Sex: Male
  Weight: 81.19 kg

DRUGS (8)
  1. CILOSTAZOL. [Concomitant]
     Active Substance: CILOSTAZOL
     Route: 048
  2. PROBENICID [Concomitant]
     Route: 048
  3. COUMADIN [Concomitant]
     Active Substance: WARFARIN SODIUM
     Route: 048
  4. PIOGLITAZONE. [Suspect]
     Active Substance: PIOGLITAZONE
     Indication: CARDIOVASCULAR EVENT PROPHYLAXIS
     Route: 048
     Dates: start: 20061215, end: 20110327
  5. BUMEX [Concomitant]
     Active Substance: BUMETANIDE
     Route: 048
  6. ZOCOR [Concomitant]
     Active Substance: SIMVASTATIN
     Route: 048
  7. ADVAIR HFA [Concomitant]
     Active Substance: FLUTICASONE PROPIONATE\SALMETEROL XINAFOATE
     Route: 055
  8. OXYGEN. [Concomitant]
     Active Substance: OXYGEN

REACTIONS (1)
  - Cardiac failure congestive [Recovering/Resolving]

NARRATIVE: CASE EVENT DATE: 20110327
